FAERS Safety Report 24176123 (Version 2)
Quarter: 2024Q3

REPORT INFORMATION
  Report Type: Spontaneous
  Country: JP (occurrence: JP)
  Receive Date: 20240806
  Receipt Date: 20240815
  Transmission Date: 20241017
  Serious: Yes (Other)
  Sender: AMGEN
  Company Number: JP-AMGEN-JPNSP2024120961

PATIENT
  Sex: Male

DRUGS (3)
  1. BLINCYTO [Suspect]
     Active Substance: BLINATUMOMAB
     Indication: B precursor type acute leukaemia
     Dosage: 9 MICROGRAM, QD, CONTINUOUS INTRAVENOUS DRIP INFUSION
     Route: 042
     Dates: start: 20240618, end: 20240619
  2. BLINCYTO [Suspect]
     Active Substance: BLINATUMOMAB
     Dosage: 9 MICROGRAM, QD, CONTINUOUS INTRAVENOUS DRIP INFUSION
     Route: 042
     Dates: start: 20240627, end: 20240630
  3. BLINCYTO [Suspect]
     Active Substance: BLINATUMOMAB
     Dosage: 9 MICROGRAM, CONTINUOUS INTRAVENOUS DRIP INFUSION
     Route: 042
     Dates: start: 20240702, end: 20240704

REACTIONS (5)
  - Acute lymphocytic leukaemia [Unknown]
  - Aspartate aminotransferase abnormal [Recovered/Resolved]
  - Alanine aminotransferase abnormal [Recovered/Resolved]
  - Pyrexia [Recovering/Resolving]
  - Neutrophil count decreased [Recovered/Resolved]

NARRATIVE: CASE EVENT DATE: 20240618
